FAERS Safety Report 23596465 (Version 1)
Quarter: 2024Q1

REPORT INFORMATION
  Report Type: Spontaneous
  Country: US (occurrence: None)
  Receive Date: 20240304
  Receipt Date: 20240304
  Transmission Date: 20240409
  Serious: Yes (Other)
  Sender: FDA-Public Use
  Company Number: None

PATIENT
  Age: 42 Year
  Sex: Female
  Weight: 86.85 kg

DRUGS (2)
  1. WEGOVY [Suspect]
     Active Substance: SEMAGLUTIDE
     Indication: Weight control
  2. IBUPROFEN [Concomitant]
     Active Substance: IBUPROFEN

REACTIONS (11)
  - Loss of consciousness [None]
  - Gait inability [None]
  - Palpitations [None]
  - Chest pain [None]
  - Pain [None]
  - Peripheral coldness [None]
  - Dyskinesia [None]
  - Intentional dose omission [None]
  - Feeling abnormal [None]
  - Dizziness [None]
  - Job dissatisfaction [None]

NARRATIVE: CASE EVENT DATE: 20240227
